FAERS Safety Report 19674968 (Version 1)
Quarter: 2021Q3

REPORT INFORMATION
  Report Type: Spontaneous
  Country: US (occurrence: US)
  Receive Date: 20210809
  Receipt Date: 20210809
  Transmission Date: 20211014
  Serious: No
  Sender: FDA-Public Use
  Company Number: US-AUROBINDO-AUR-APL-2020-045420

PATIENT
  Age: 80 Year
  Sex: Female
  Weight: 55.34 kg

DRUGS (3)
  1. LEVOFLOXACIN. [Suspect]
     Active Substance: LEVOFLOXACIN
     Indication: BRONCHITIS
     Dosage: 750 MILLIGRAM, DAILY
     Route: 048
     Dates: start: 20200628, end: 202007
  2. LYRICA [Concomitant]
     Active Substance: PREGABALIN
     Indication: NEUROPATHY PERIPHERAL
     Dosage: 3 DOSAGE FORM (50 MG CAPSULES AT NIGHT)
     Route: 048
     Dates: start: 2018
  3. LEVOFLOXACIN. [Suspect]
     Active Substance: LEVOFLOXACIN
     Dosage: 750 MILLIGRAM, DAILY
     Route: 048
     Dates: start: 202007

REACTIONS (7)
  - Swollen tongue [Recovered/Resolved]
  - Hypersensitivity [Not Recovered/Not Resolved]
  - Oropharyngeal pain [Recovered/Resolved]
  - Immune system disorder [Unknown]
  - Poor quality sleep [Unknown]
  - Product substitution issue [Unknown]
  - Throat tightness [Recovered/Resolved]

NARRATIVE: CASE EVENT DATE: 202007
